FAERS Safety Report 5570075-5 (Version None)
Quarter: 2007Q4

REPORT INFORMATION
  Report Type: 
  Country: None (occurrence: None)
  Receive Date: 20071218
  Receipt Date: 20071205
  Transmission Date: 20080405
  Serious: Yes (Hospitalization)
  Sender: FDA-Public Use
  Company Number: E3810-01446-SPO-JP

PATIENT
  Age: 76 Year
  Sex: Male
  Weight: 65 kg

DRUGS (7)
  1. RABEPRAZOLE SODIUM [Suspect]
     Indication: GASTRIC ULCER
     Dosage: 10 MG, 1 IN 1 D, ORAL
     Route: 048
     Dates: start: 20071101, end: 20071112
  2. PL                         (NON-PYRAZOLONE DRUG FOR COLD) [Concomitant]
  3. LEVOFLOXACIN [Concomitant]
  4. ROCEPHIN [Concomitant]
  5. GLORIAMIN                   (GLORIAMIN) [Concomitant]
  6. ULGUT                  (BENEXATE HYDROCHLORIDE) [Concomitant]
  7. NEUER                   (CETRAXATE HYDROCHLORIDE) [Concomitant]

REACTIONS (5)
  - ALANINE AMINOTRANSFERASE INCREASED [None]
  - ASPARTATE AMINOTRANSFERASE INCREASED [None]
  - IMMUNOGLOBULINS DECREASED [None]
  - LEUKOPENIA [None]
  - PYREXIA [None]
